FAERS Safety Report 18731808 (Version 2)
Quarter: 2021Q1

REPORT INFORMATION
  Report Type: Spontaneous
  Country: PT (occurrence: PT)
  Receive Date: 20210112
  Receipt Date: 20210122
  Transmission Date: 20210419
  Serious: Yes (Other)
  Sender: FDA-Public Use
  Company Number: PT-ASTRAZENECA-2020SF70585

PATIENT
  Age: 25408 Day
  Sex: Female

DRUGS (1)
  1. FASLODEX [Suspect]
     Active Substance: FULVESTRANT
     Route: 030
     Dates: start: 20201218, end: 20201218

REACTIONS (8)
  - Wheezing [Unknown]
  - Cough [Recovered/Resolved]
  - Rhonchi [Unknown]
  - Suspected product quality issue [Unknown]
  - Thrombocytosis [Unknown]
  - Chest discomfort [Recovered/Resolved]
  - Myoglobin blood increased [Unknown]
  - Carbohydrate antigen 15-3 increased [Unknown]

NARRATIVE: CASE EVENT DATE: 20201218
